FAERS Safety Report 25711661 (Version 4)
Quarter: 2025Q4

REPORT INFORMATION
  Report Type: Spontaneous
  Country: EU (occurrence: None)
  Receive Date: 20250821
  Receipt Date: 20251014
  Transmission Date: 20260118
  Serious: Yes (Other)
  Sender: UCB
  Company Number: EU-UCBSA-2025051099

PATIENT
  Age: 68 Year

DRUGS (2)
  1. NEUPRO [Suspect]
     Active Substance: ROTIGOTINE
     Indication: Parkinson^s disease
     Dosage: 8 MILLIGRAM, ONCE DAILY (QD) (PER 24 HOURS)
  2. NEUPRO [Suspect]
     Active Substance: ROTIGOTINE
     Dosage: 8 MILLIGRAM, ONCE DAILY (QD) (PER 24 HOURS)

REACTIONS (4)
  - Parkinson^s disease [Recovering/Resolving]
  - Drug ineffective [Unknown]
  - Product adhesion issue [Unknown]
  - Product dose omission issue [Unknown]
